FAERS Safety Report 7623545-X (Version None)
Quarter: 2011Q3

REPORT INFORMATION
  Report Type: 
  Country: None (occurrence: None)
  Receive Date: 20110720
  Receipt Date: 20110707
  Transmission Date: 20111222
  Serious: Yes (Hospitalization, Other)
  Sender: FDA-Public Use
  Company Number: CA-ELI_LILLY_AND_COMPANY-CA201107001691

PATIENT
  Sex: Female

DRUGS (8)
  1. ZYPREXA [Suspect]
     Dosage: 5 MG, QD
  2. SINEQUAN [Concomitant]
  3. ZYPREXA [Suspect]
     Indication: PSYCHOTIC DISORDER
     Dosage: 10 MG, EACH EVENING
  4. ZYPREXA [Suspect]
     Dosage: 2.5 MG, QD
  5. PERFENAZIN [Concomitant]
  6. PREMARIN [Concomitant]
  7. PANTOPRAZOLE SODIUM [Concomitant]
  8. HYZAAR [Concomitant]

REACTIONS (10)
  - ASPARTATE AMINOTRANSFERASE INCREASED [None]
  - RECTAL HAEMORRHAGE [None]
  - HYPERGLYCAEMIA [None]
  - DUODENITIS [None]
  - PANCREATITIS [None]
  - INTESTINAL HAEMORRHAGE [None]
  - ALANINE AMINOTRANSFERASE INCREASED [None]
  - HYPERLIPIDAEMIA [None]
  - MYOCARDIAL INFARCTION [None]
  - WEIGHT INCREASED [None]
